FAERS Safety Report 13407845 (Version 1)
Quarter: 2017Q2

REPORT INFORMATION
  Report Type: Report from Study
  Country: US (occurrence: US)
  Receive Date: 20170406
  Receipt Date: 20170406
  Transmission Date: 20170830
  Serious: Yes (Hospitalization, Other)
  Sender: FDA-Public Use
  Company Number: US-GILEAD-2017-0263277

PATIENT
  Age: 54 Year
  Sex: Female
  Weight: 42 kg

DRUGS (3)
  1. AMBRISENTAN [Suspect]
     Active Substance: AMBRISENTAN
     Indication: VASCULAR RESISTANCE PULMONARY INCREASED
  2. AMBRISENTAN [Suspect]
     Active Substance: AMBRISENTAN
     Indication: OBSTRUCTIVE AIRWAYS DISORDER
  3. AMBRISENTAN [Suspect]
     Active Substance: AMBRISENTAN
     Indication: PULMONARY HYPERTENSION
     Dosage: 5 MG, UNK
     Route: 065
     Dates: start: 20110819

REACTIONS (2)
  - Gastrooesophageal reflux disease [Unknown]
  - Chronic respiratory failure [Unknown]
